FAERS Safety Report 8738204 (Version 2)
Quarter: 2012Q4

REPORT INFORMATION
  Report Type: 
  Country: US (occurrence: US)
  Receive Date: 20120823
  Receipt Date: 20120926
  Transmission Date: 20130627
  Serious: No
  Sender: FDA-Public Use
  Company Number: US-PFIZER INC-2012203426

PATIENT
  Age: 75 Year
  Sex: Female
  Weight: 54.42 kg

DRUGS (5)
  1. LYRICA [Suspect]
     Indication: BACK DISORDER
     Dosage: 75 mg
     Route: 048
     Dates: start: 20120817
  2. LYRICA [Suspect]
     Indication: NERVE COMPRESSION
  3. LYRICA [Suspect]
     Indication: BACK PAIN
  4. LYRICA [Suspect]
     Indication: INTERVERTEBRAL DISC PROTRUSION
  5. LYRICA [Suspect]
     Indication: BURSITIS

REACTIONS (11)
  - Ulcer [Unknown]
  - Feeling hot [Unknown]
  - Somnolence [Unknown]
  - Hyperhidrosis [Unknown]
  - Diarrhoea [Unknown]
  - Abdominal discomfort [Unknown]
  - Drug intolerance [Unknown]
  - Pain [Unknown]
  - Gait disturbance [Unknown]
  - Dizziness [Unknown]
  - Constipation [Unknown]
